FAERS Safety Report 17762638 (Version 2)
Quarter: 2020Q2

REPORT INFORMATION
  Report Type: Spontaneous
  Country: US (occurrence: US)
  Receive Date: 20200509
  Receipt Date: 20200515
  Transmission Date: 20200714
  Serious: No
  Sender: FDA-Public Use
  Company Number: US-GLAXOSMITHKLINE-US2020076080

PATIENT
  Age: 64 Year
  Sex: Female

DRUGS (3)
  1. LYSINE [Concomitant]
     Active Substance: LYSINE
     Indication: ORAL HERPES
     Dosage: UNK
  2. ABREVA [Suspect]
     Active Substance: DOCOSANOL
     Indication: ORAL HERPES
     Dosage: UNK (7 DAYS)
  3. ABREVA [Suspect]
     Active Substance: DOCOSANOL
     Dosage: UNK (7 DAYS)

REACTIONS (1)
  - Incorrect product administration duration [Unknown]
